FAERS Safety Report 7158169-4 (Version None)
Quarter: 2010Q4

REPORT INFORMATION
  Report Type: 
  Country: None (occurrence: None)
  Receive Date: 20101214
  Receipt Date: 20100505
  Transmission Date: 20110411
  Serious: No
  Sender: FDA-Public Use
  Company Number: US-ASTRAZENECA-2010SE20401

PATIENT
  Age: 47 Year
  Sex: Female
  Weight: 74.8 kg

DRUGS (2)
  1. CRESTOR [Suspect]
     Indication: BLOOD CHOLESTEROL
     Route: 048
     Dates: end: 20091001
  2. CRESTOR [Suspect]
     Route: 048
     Dates: start: 20091001, end: 20100502

REACTIONS (4)
  - HEADACHE [None]
  - JOINT SWELLING [None]
  - MYALGIA [None]
  - NAUSEA [None]
